FAERS Safety Report 10672952 (Version 7)
Quarter: 2015Q1

REPORT INFORMATION
  Report Type: Report from Study
  Country: US (occurrence: US)
  Receive Date: 20141223
  Receipt Date: 20150213
  Transmission Date: 20150720
  Serious: Yes (Hospitalization, Other)
  Sender: FDA-Public Use
  Company Number: US-ACTELION-A-US2014-110169

PATIENT
  Age: 60 Year
  Sex: Female

DRUGS (6)
  1. TRACLEER [Suspect]
     Active Substance: BOSENTAN\BOSENTAN MONOHYDRATE
     Indication: PULMONARY ARTERIAL HYPERTENSION
     Dosage: UNK
     Route: 048
  2. COUMADIN [Suspect]
     Active Substance: WARFARIN SODIUM
     Indication: PRODUCT USED FOR UNKNOWN INDICATION
     Dosage: 5 MG, UNK
     Route: 048
  3. VENTAVIS [Suspect]
     Active Substance: ILOPROST
     Indication: PULMONARY ARTERIAL HYPERTENSION
     Dosage: UNK
     Route: 055
     Dates: start: 20130723
  4. SILDENAFIL. [Concomitant]
     Active Substance: SILDENAFIL
     Indication: PULMONARY ARTERIAL HYPERTENSION
  5. TREPROSTINIL [Suspect]
     Active Substance: TREPROSTINIL
     Indication: PRODUCT USED FOR UNKNOWN INDICATION
     Route: 065
  6. ASPIRIN. [Concomitant]
     Active Substance: ASPIRIN

REACTIONS (15)
  - Arrhythmia [Unknown]
  - Heart rate increased [Recovered/Resolved]
  - Dialysis [Unknown]
  - Medication error [Unknown]
  - Haemorrhage [Unknown]
  - Blood pressure increased [Unknown]
  - Hepatic cirrhosis [Unknown]
  - Atrial fibrillation [Unknown]
  - Drug dose omission [Unknown]
  - Tachycardia [Unknown]
  - Anxiety [Unknown]
  - Blood viscosity decreased [Unknown]
  - Blood product transfusion [Unknown]
  - Renal disorder [Unknown]
  - Somnolence [Unknown]
